FAERS Safety Report 6902837-3 (Version None)
Quarter: 2010Q3

REPORT INFORMATION
  Report Type: 
  Country: None (occurrence: None)
  Receive Date: 20100803
  Receipt Date: 20080809
  Transmission Date: 20110219
  Serious: Yes (Other)
  Sender: FDA-Public Use
  Company Number: US-PFIZER INC-2008050787

PATIENT
  Sex: Female
  Weight: 68.181 kg

DRUGS (2)
  1. LYRICA [Suspect]
     Indication: FIBROMYALGIA
     Route: 048
     Dates: start: 20080226
  2. FLEXERIL [Concomitant]

REACTIONS (7)
  - ASTHENIA [None]
  - DRUG DOSE OMISSION [None]
  - FEELING DRUNK [None]
  - MALAISE [None]
  - MUSCULAR WEAKNESS [None]
  - SWELLING [None]
  - WEIGHT INCREASED [None]
